FAERS Safety Report 9931719 (Version 1)
Quarter: 2014Q1

REPORT INFORMATION
  Report Type: Spontaneous
  Country: US (occurrence: None)
  Receive Date: 20140227
  Receipt Date: 20140227
  Transmission Date: 20141002
  Serious: Yes (Disabling)
  Sender: FDA-Public Use
  Company Number: None

PATIENT
  Age: 42 Year
  Sex: Female
  Weight: 56.7 kg

DRUGS (3)
  1. PURITY VITAMINS C, PURITY/MERA [Suspect]
     Dosage: C-3X ADAY ?2-3 PILLS
     Route: 048
     Dates: start: 201211, end: 201305
  2. PURITY VITAMINS B PURITY/MERA [Suspect]
     Dosage: B-4X A DAY
     Route: 048
     Dates: start: 201211, end: 201305
  3. VITAMINS [Suspect]
     Dosage: MULTIMINERAL 2XADAY 3X ADAY
     Route: 048
     Dates: start: 201211, end: 201305

REACTIONS (4)
  - Alopecia [None]
  - Lymphadenopathy [None]
  - Pharyngeal disorder [None]
  - Menstrual disorder [None]
